FAERS Safety Report 16908688 (Version 1)
Quarter: 2019Q4

REPORT INFORMATION
  Report Type: Spontaneous
  Country: US (occurrence: US)
  Receive Date: 20191011
  Receipt Date: 20191011
  Transmission Date: 20200122
  Serious: Yes (Hospitalization, Disabling)
  Sender: FDA-Public Use
  Company Number: None

PATIENT
  Age: 36 Year
  Sex: Female
  Weight: 63 kg

DRUGS (2)
  1. PREDNISONE. [Suspect]
     Active Substance: PREDNISONE
  2. TORADOL [Suspect]
     Active Substance: KETOROLAC TROMETHAMINE

REACTIONS (11)
  - Back pain [None]
  - Liver injury [None]
  - Renal disorder [None]
  - Arachnoiditis [None]
  - Loss of personal independence in daily activities [None]
  - Pain [None]
  - Inadequate analgesia [None]
  - Drug titration [None]
  - Headache [None]
  - Hormone level abnormal [None]
  - Loss of employment [None]

NARRATIVE: CASE EVENT DATE: 20190720
